FAERS Safety Report 14431487 (Version 1)
Quarter: 2018Q1

REPORT INFORMATION
  Report Type: Spontaneous
  Country: ES (occurrence: ES)
  Receive Date: 20180124
  Receipt Date: 20180124
  Transmission Date: 20180509
  Serious: Yes (Hospitalization, Other)
  Sender: FDA-Public Use
  Company Number: ES-BAXTER-2018BAX002281

PATIENT
  Age: 79 Year
  Sex: Male

DRUGS (6)
  1. CLOFAZIMINE [Concomitant]
     Active Substance: CLOFAZIMINE
     Indication: TYPE 2 LEPRA REACTION
     Route: 065
  2. MYCOPHENOLATE SODIUM [Suspect]
     Active Substance: MYCOPHENOLATE SODIUM
     Indication: GLOMERULONEPHRITIS PROLIFERATIVE
     Route: 065
     Dates: start: 201105, end: 201106
  3. DAPSONE. [Suspect]
     Active Substance: DAPSONE
     Indication: TYPE 2 LEPRA REACTION
     Dosage: 100 MILLIGRAM DAILY; 100 MG/DAY
     Route: 065
  4. GENOXAL [Suspect]
     Active Substance: CYCLOPHOSPHAMIDE
     Indication: GLOMERULONEPHRITIS PROLIFERATIVE
     Route: 065
     Dates: end: 201105
  5. PREDNISONE. [Suspect]
     Active Substance: PREDNISONE
     Indication: GLOMERULONEPHRITIS PROLIFERATIVE
     Route: 048
  6. RIFAMPICIN [Concomitant]
     Active Substance: RIFAMPIN
     Indication: TYPE 2 LEPRA REACTION
     Dosage: 300 MG/MONTH
     Route: 065

REACTIONS (3)
  - Type 2 lepra reaction [Unknown]
  - Haemolytic anaemia [Unknown]
  - Pancytopenia [Unknown]

NARRATIVE: CASE EVENT DATE: 201105
